FAERS Safety Report 9461683 (Version 1)
Quarter: 2013Q3

REPORT INFORMATION
  Report Type: Spontaneous
  Country: BR (occurrence: None)
  Receive Date: 20130813
  Receipt Date: 20130813
  Transmission Date: 20140515
  Serious: Yes (Hospitalization, Other)
  Sender: FDA-Public Use
  Company Number: ENTC2013-0288

PATIENT
  Age: 78 None
  Sex: Female

DRUGS (8)
  1. STALEVO (LEVODOPA, CARBIDOPA, ENTACAPONE) [Suspect]
     Indication: PARKINSON^S DISEASE
     Dosage: 5 DF A DAY (50 MG) MORE THAN 20 YEARS
     Route: 048
  2. CYMBALTA [Concomitant]
  3. PLAKETAR [Concomitant]
  4. REMINYL ER [Concomitant]
  5. ATENOLOL [Concomitant]
  6. DORMONID [Concomitant]
  7. COMBIRON [Concomitant]
  8. CALCIUM [Concomitant]

REACTIONS (2)
  - Pneumonia [None]
  - Bedridden [None]
